FAERS Safety Report 15245107 (Version 1)
Quarter: 2018Q3

REPORT INFORMATION
  Report Type: Spontaneous
  Country: BR (occurrence: BR)
  Receive Date: 20180806
  Receipt Date: 20180806
  Transmission Date: 20181010
  Serious: Yes (Death, Hospitalization, Other)
  Sender: FDA-Public Use
  Company Number: BR-SAKK-2018SA173194AA

PATIENT
  Sex: Male

DRUGS (1)
  1. MYOZYME [Suspect]
     Active Substance: ALGLUCOSIDASE ALFA
     Indication: GLYCOGEN STORAGE DISEASE TYPE II
     Route: 041

REACTIONS (4)
  - Myopathy [Fatal]
  - Myocardial infarction [Fatal]
  - Hospitalisation [Unknown]
  - Neuropathy peripheral [Fatal]
